FAERS Safety Report 25530165 (Version 1)
Quarter: 2025Q3

REPORT INFORMATION
  Report Type: Spontaneous
  Country: BA (occurrence: BA)
  Receive Date: 20250708
  Receipt Date: 20250708
  Transmission Date: 20251020
  Serious: Yes (Other)
  Sender: NOVARTIS
  Company Number: BA-002147023-NVSC2025BA108021

PATIENT
  Age: 79 Year
  Sex: Female

DRUGS (2)
  1. FEMARA [Suspect]
     Active Substance: LETROZOLE
     Indication: Product used for unknown indication
     Dosage: 2.5 MG, QD (1X1)
     Route: 065
     Dates: start: 202401
  2. KISQALI [Suspect]
     Active Substance: RIBOCICLIB SUCCINATE
     Indication: Product used for unknown indication
     Dosage: 200 MG, TID (1X3) (S ONCE DAILY FOR 21 DAYS, FOLLOWED BY A 7-DAY BREAK)
     Route: 065
     Dates: start: 202409

REACTIONS (3)
  - Disease progression [Unknown]
  - Leukoencephalopathy [Unknown]
  - Bone hypertrophy [Unknown]

NARRATIVE: CASE EVENT DATE: 20250101
